FAERS Safety Report 8956535 (Version 1)
Quarter: 2012Q4

REPORT INFORMATION
  Report Type: 
  Country: FR (occurrence: FR)
  Receive Date: 20121210
  Receipt Date: 20121210
  Transmission Date: 20130627
  Serious: Yes (Hospitalization, Other)
  Sender: FDA-Public Use
  Company Number: FR-PFIZER INC-2012306634

PATIENT
  Sex: Female

DRUGS (9)
  1. AMIODARONE HCL [Suspect]
     Indication: ATRIAL FIBRILLATION
     Dosage: UNK
     Route: 065
  2. LASILIX [Concomitant]
     Dosage: UNK
  3. CARDENSIEL [Concomitant]
     Dosage: UNK
  4. MINISINTROM [Concomitant]
     Dosage: UNK
  5. VENTOLINE [Concomitant]
     Dosage: UNK
  6. INIPOMP [Concomitant]
     Dosage: UNK
  7. ZOLOFT [Concomitant]
     Dosage: UNK
     Dates: start: 201207, end: 201208
  8. IMOVANE [Concomitant]
     Dosage: UNK
     Dates: end: 20121004
  9. TEMESTA [Concomitant]
     Dosage: UNK
     Dates: start: 201210, end: 201211

REACTIONS (2)
  - Cardiac failure [Unknown]
  - Hypothyroidism [Unknown]
